FAERS Safety Report 6921110-0 (Version None)
Quarter: 2010Q3

REPORT INFORMATION
  Report Type: 
  Country: None (occurrence: None)
  Receive Date: 20100812
  Receipt Date: 20100730
  Transmission Date: 20110219
  Serious: Yes (Hospitalization)
  Sender: FDA-Public Use
  Company Number: DE-ROCHE-719720

PATIENT
  Sex: Female
  Weight: 75 kg

DRUGS (15)
  1. ROACTEMRA [Suspect]
     Indication: RHEUMATOID ARTHRITIS
     Route: 042
     Dates: start: 20091009, end: 20100409
  2. LEVOTHYROXINE SODIUM [Concomitant]
     Indication: HYPOTHYROIDISM
     Dosage: TAKEN FOR YEARS
     Route: 048
  3. PANTOZOL [Concomitant]
     Indication: GASTRITIS
     Dosage: TAKEN FOR YEARS
     Route: 048
  4. ENALAPRIL [Concomitant]
     Indication: HYPERTENSION
     Dosage: TAKEN FOR YEARS
     Route: 048
  5. BISOPROLOL [Concomitant]
     Indication: HYPERTENSION
     Dosage: TAKEN FOR YEARS
     Route: 048
  6. AMLODIPINE [Concomitant]
     Indication: HYPERTENSION
     Dosage: TAKEN FOR YEARS
     Route: 048
  7. SIMVASTATIN [Concomitant]
     Dosage: TAKLEN FOR YEARS
     Route: 048
  8. ASPIRIN [Concomitant]
     Route: 048
  9. CALCIUM [Concomitant]
     Indication: OSTEOPOROSIS
     Dosage: TAKEN FOR YEARS
     Route: 048
  10. VITAMIN D [Concomitant]
     Indication: OSTEOPOROSIS
     Dosage: TAKEN FOR YEARS
     Route: 048
  11. INSULIN [Concomitant]
     Route: 058
  12. TRIAMTEREN COMP (HYDROCHLOROTHIAZIDE/TRIAMTERENE) [Concomitant]
     Route: 048
  13. NON-STEROIDAL ANTI-INFLAMMATORY NOS [Concomitant]
  14. ACE INHIBITORS [Concomitant]
  15. CORTICOSTEROID NOS [Concomitant]
     Indication: RHEUMATOID ARTHRITIS

REACTIONS (4)
  - FACE OEDEMA [None]
  - HYPERSENSITIVITY [None]
  - PRURITUS GENERALISED [None]
  - RASH GENERALISED [None]
